FAERS Safety Report 7501424-6 (Version None)
Quarter: 2011Q2

REPORT INFORMATION
  Report Type: 
  Country: None (occurrence: None)
  Receive Date: 20110524
  Receipt Date: 20110513
  Transmission Date: 20111010
  Serious: Yes (Other)
  Sender: FDA-Public Use
  Company Number: US-BAYER-201040924NA

PATIENT
  Age: 30 Year
  Sex: Female
  Weight: 52.154 kg

DRUGS (11)
  1. YASMIN [Suspect]
     Dosage: UNK
     Dates: start: 20050125, end: 20080617
  2. YASMIN [Suspect]
     Indication: PREMENSTRUAL SYNDROME
     Dosage: UNK
     Dates: start: 20030811
  3. DROSPIRENONE AND ETHINYL ESTRADIOL [Suspect]
     Dosage: UNK
     Dates: start: 20080708, end: 20090902
  4. QVAR 40 [Concomitant]
     Indication: PRODUCT USED FOR UNKNOWN INDICATION
     Dosage: 80 MCG/ 2 PUFF(S), BID
  5. CYCLOBENZAPRINE [Concomitant]
     Indication: PRODUCT USED FOR UNKNOWN INDICATION
     Dosage: 10 MG, TID
  6. AMOXICILLIN [Concomitant]
     Indication: SINUS DISORDER
     Dosage: 875 MG, BID
     Dates: start: 20081211, end: 20081221
  7. YASMIN [Suspect]
     Dosage: UNK
     Dates: start: 20100201
  8. ZITHROMAX [Concomitant]
     Indication: SINUSITIS
     Dosage: 2 TABS TODAY THEN 1 FOR 4 DAYS
     Route: 048
     Dates: start: 20081203
  9. YASMIN [Suspect]
     Indication: ORAL CONTRACEPTION
     Dosage: UNK
     Route: 048
     Dates: start: 20020801
  10. DROSPIRENONE AND ETHINYL ESTRADIOL [Suspect]
     Dosage: UNK
     Dates: start: 20091201
  11. DROSPIRENONE AND ETHINYL ESTRADIOL [Suspect]
     Indication: ORAL CONTRACEPTION
     Dosage: UNK
     Dates: start: 20061209

REACTIONS (9)
  - GALLBLADDER DISORDER [None]
  - CHOLELITHIASIS [None]
  - FAT INTOLERANCE [None]
  - ABDOMINAL PAIN UPPER [None]
  - DIARRHOEA [None]
  - NAUSEA [None]
  - PAIN [None]
  - VOMITING [None]
  - DISCOMFORT [None]
